FAERS Safety Report 6432226-X (Version None)
Quarter: 2009Q4

REPORT INFORMATION
  Report Type: 
  Country: None (occurrence: None)
  Receive Date: 20091105
  Receipt Date: 20091021
  Transmission Date: 20100525
  Serious: Yes (Hospitalization)
  Sender: FDA-Public Use
  Company Number: 2009US000035

PATIENT
  Sex: Male

DRUGS (2)
  1. ENTEREG [Suspect]
     Indication: POSTOPERATIVE ILEUS
     Dosage: 12 MG; ; PO
     Route: 048
     Dates: start: 20090501
  2. LOVENOX [Concomitant]

REACTIONS (3)
  - ABDOMINAL WALL HAEMATOMA [None]
  - ARTERIAL RUPTURE [None]
  - PROCEDURAL COMPLICATION [None]
